FAERS Safety Report 13144098 (Version 1)
Quarter: 2017Q1

REPORT INFORMATION
  Report Type: Report from Study
  Country: US (occurrence: US)
  Receive Date: 20170124
  Receipt Date: 20170124
  Transmission Date: 20170428
  Serious: Yes (Other)
  Sender: FDA-Public Use
  Company Number: US-ALEXION PHARMACEUTICALS INC.-A201700350

PATIENT
  Sex: Female

DRUGS (1)
  1. SOLIRIS [Suspect]
     Active Substance: ECULIZUMAB
     Indication: HAEMOLYTIC URAEMIC SYNDROME
     Dosage: 1200 MG, Q2W
     Route: 042

REACTIONS (19)
  - Albumin globulin ratio abnormal [Unknown]
  - Epistaxis [Unknown]
  - Contusion [Unknown]
  - Blood creatinine abnormal [Unknown]
  - International normalised ratio abnormal [Unknown]
  - Haematocrit abnormal [Unknown]
  - Red blood cell count abnormal [Unknown]
  - Neutropenia [Not Recovered/Not Resolved]
  - Renal impairment [Unknown]
  - Mean cell volume abnormal [Unknown]
  - Haemoglobin abnormal [Unknown]
  - Thrombocytopenia [Not Recovered/Not Resolved]
  - Red blood cell abnormality [Unknown]
  - Leukopenia [Not Recovered/Not Resolved]
  - Glomerular filtration rate abnormal [Unknown]
  - Blood albumin abnormal [Unknown]
  - Cough [Unknown]
  - Prothrombin time abnormal [Unknown]
  - Blood lactate dehydrogenase abnormal [Unknown]

NARRATIVE: CASE EVENT DATE: 20161122
